FAERS Safety Report 8287944-8 (Version None)
Quarter: 2012Q2

REPORT INFORMATION
  Report Type: 
  Country: None (occurrence: None)
  Receive Date: 20120416
  Receipt Date: 20120406
  Transmission Date: 20120825
  Serious: Yes (Hospitalization, Other)
  Sender: FDA-Public Use
  Company Number: US-ASTRAZENECA-2010SE55049

PATIENT
  Age: 68 Year
  Sex: Female
  Weight: 79 kg

DRUGS (30)
  1. NEXIUM [Suspect]
     Dosage: DAILY
     Route: 048
  2. DESIPRAMINE HCL [Concomitant]
  3. METFORMIN HCL [Concomitant]
  4. JANUVIA [Concomitant]
  5. VITAMIN E [Concomitant]
  6. MOTRIN [Concomitant]
     Indication: PAIN
     Route: 048
  7. MOTRIN [Concomitant]
     Dosage: 2-3 TIMES A DAY
     Route: 048
  8. SLEEPING PILLS [Concomitant]
  9. POTASSIUM CHLORIDE [Concomitant]
  10. MIRTAZAPINE [Concomitant]
  11. CLARITIN [Concomitant]
  12. TRAMADOL HCL [Concomitant]
  13. OMEPRAZOLE [Suspect]
     Route: 048
  14. FUROSEMIDE [Concomitant]
  15. LUNESTA [Concomitant]
     Route: 048
  16. METOPROLOL SUCCINATE [Suspect]
     Route: 048
  17. NORCO [Concomitant]
     Dosage: 10-325 MG,1 TABLET AS NEEDED, EVERY 6 HOURS
     Route: 048
  18. LEXAPRO [Concomitant]
  19. PERCOCET [Concomitant]
     Dosage: 2.5-325 MG, 1 TABLET AS NEEDED, EVERY THREE HOURS
     Route: 048
  20. NAPROXEN (ALEVE) [Concomitant]
     Dosage: AT NIGHT
  21. ASPIRIN [Concomitant]
  22. VESICARE [Concomitant]
  23. LOSARTAN POTASSIUM [Concomitant]
  24. INDAPAMIDE [Concomitant]
  25. NAPRELAN [Concomitant]
     Route: 048
  26. NAPRELAN [Concomitant]
     Route: 048
  27. NEXIUM [Suspect]
     Route: 048
  28. CRESTOR [Suspect]
     Route: 048
  29. NORCO [Concomitant]
     Indication: PAIN
  30. BENADRYL [Concomitant]

REACTIONS (12)
  - NAUSEA [None]
  - HYPERHIDROSIS [None]
  - INSOMNIA [None]
  - FRUSTRATION [None]
  - HANGOVER [None]
  - ULCER [None]
  - OESOPHAGITIS [None]
  - OSTEOARTHRITIS [None]
  - GASTRITIS [None]
  - HUMERUS FRACTURE [None]
  - HIATUS HERNIA [None]
  - VOMITING [None]
